FAERS Safety Report 10360947 (Version 3)
Quarter: 2014Q3

REPORT INFORMATION
  Report Type: Spontaneous
  Country: US (occurrence: US)
  Receive Date: 20140804
  Receipt Date: 20140916
  Transmission Date: 20150326
  Serious: Yes (Other)
  Sender: FDA-Public Use
  Company Number: US-PFIZER INC-2014216201

PATIENT
  Age: 48 Year
  Sex: Female
  Weight: 72.6 kg

DRUGS (61)
  1. PERCOCET [Concomitant]
     Active Substance: ACETAMINOPHEN\OXYCODONE HYDROCHLORIDE
     Dosage: OXYCODONE HYDROCHLORIDE 5MG - PARACETAMOL 325MG, 1-2 Q 4-6 HOURS,  AS NEEDED
     Dates: start: 20130304
  2. TRAMADOL/ACETAMINOPHEN [Concomitant]
     Active Substance: ACETAMINOPHEN\TRAMADOL
     Indication: NECK PAIN
     Dosage: TRAMADOL 37.5MG - PARACETAMOL 325MG, 1-2 EVERY 4-6 HOURS
     Dates: start: 20130304
  3. LIDOCAINE. [Concomitant]
     Active Substance: LIDOCAINE
     Dosage: 5% TWICE DAILY
     Dates: start: 20131226
  4. TINDAMAX [Concomitant]
     Active Substance: TINIDAZOLE
     Dosage: 500 MG, 2X/DAY
     Dates: start: 20111005
  5. SEPTRA DS [Concomitant]
     Active Substance: SULFAMETHOXAZOLE\TRIMETHOPRIM
     Dosage: 800 MG, 2X/DAY
     Dates: start: 20091121
  6. ZYPREXA [Concomitant]
     Active Substance: OLANZAPINE
     Dosage: 10 MG (1 AM, 1 NOON, 2 HS)
     Dates: start: 20080229
  7. COLACE [Concomitant]
     Active Substance: DOCUSATE SODIUM
     Dosage: 100 MG, 2X/DAY
     Dates: start: 20080229
  8. DEPAKOTE [Concomitant]
     Active Substance: DIVALPROEX SODIUM
     Dosage: 500 MG, 2X/DAY
     Dates: start: 20090110
  9. FLECTOR [Concomitant]
     Active Substance: DICLOFENAC EPOLAMINE
     Dosage: 1.3% TWICE DAILY
     Dates: start: 20131226
  10. CELEBREX [Suspect]
     Active Substance: CELECOXIB
     Dosage: 200 MG, DAILY
     Dates: start: 20120824
  11. PROBIOTICS [Concomitant]
     Active Substance: PROBIOTICS NOS
     Dosage: 1 DF, 2X/DAY
     Dates: start: 20121105
  12. METRONIDAZOLE. [Concomitant]
     Active Substance: METRONIDAZOLE
     Dosage: 500 MG, 2X/DAY
     Dates: start: 20110708
  13. METRONIDAZOLE. [Concomitant]
     Active Substance: METRONIDAZOLE
     Dosage: 500 MG, 2X/DAY
     Dates: start: 20111116
  14. AMOXICILLIN. [Concomitant]
     Active Substance: AMOXICILLIN
     Dosage: 875 MG, 2X/DAY
  15. CLONAZEPAM. [Concomitant]
     Active Substance: CLONAZEPAM
     Dosage: 0.5 MG, 1X/DAY (PRN)
     Dates: start: 20090818
  16. TOPAMAX [Concomitant]
     Active Substance: TOPIRAMATE
     Dosage: 25 MG, 2X/DAY
     Dates: start: 20080123
  17. VITAMIN D [Concomitant]
     Active Substance: CHOLECALCIFEROL
     Dosage: 200 IU, DAILY
     Dates: start: 20110516
  18. CLINDAMYCIN [Concomitant]
     Active Substance: CLINDAMYCIN\CLINDAMYCIN PHOSPHATE
     Dosage: 150 MG (2 TAB), 2X/DAY
     Dates: start: 20120313
  19. DIFLUCAN [Concomitant]
     Active Substance: FLUCONAZOLE
     Dosage: 100 MG, DAILY
     Dates: start: 20140211
  20. DIFLUCAN [Concomitant]
     Active Substance: FLUCONAZOLE
     Dosage: 100 MG, DAILY
     Dates: start: 20120412
  21. TIZANIDINE HCL [Concomitant]
     Active Substance: TIZANIDINE HYDROCHLORIDE
     Indication: MUSCLE SPASMS
     Dosage: 4 MG (1 TAB Q 6-8 HOURS), AS NEEDED
     Dates: start: 20130304
  22. LORAZEPAM. [Concomitant]
     Active Substance: LORAZEPAM
     Dosage: 0.5 MG, UNK
     Dates: start: 20131226
  23. FISH OIL [Concomitant]
     Active Substance: FISH OIL
     Indication: HYPERLIPIDAEMIA
     Dosage: UNK
  24. OMEGA 3 [Concomitant]
     Active Substance: OMEGA-3 FATTY ACIDS
     Indication: HYPERLIPIDAEMIA
     Dosage: 1 - 2 TIMES DAILY
     Dates: start: 20130304
  25. MOBIC [Concomitant]
     Active Substance: MELOXICAM
     Dosage: 15 MG, 1X/DAY (QD)
     Dates: start: 20090122
  26. RISPERDAL [Concomitant]
     Active Substance: RISPERIDONE
     Dosage: 0.5 MG, 2X/DAY
     Dates: start: 20090116
  27. DEPAKOTE [Concomitant]
     Active Substance: DIVALPROEX SODIUM
     Dosage: 250 MG, 2X/DAY
     Dates: start: 20080104
  28. CELEBREX [Suspect]
     Active Substance: CELECOXIB
     Indication: RHEUMATOID ARTHRITIS
     Dosage: 200 MG, 1X/DAY
     Dates: start: 2012
  29. CELEBREX [Suspect]
     Active Substance: CELECOXIB
     Indication: OSTEOARTHRITIS
     Dosage: 200 MG, 2X/DAY
     Dates: start: 20120313
  30. CELEBREX [Suspect]
     Active Substance: CELECOXIB
     Dosage: 200 MG, DAILY
     Dates: start: 20130110, end: 2014
  31. VITAMIN D [Concomitant]
     Active Substance: CHOLECALCIFEROL
     Dosage: 2000 U, 1X/DAY
     Dates: start: 20080104
  32. CLINDAMYCIN [Concomitant]
     Active Substance: CLINDAMYCIN\CLINDAMYCIN PHOSPHATE
     Dosage: 150 MG, 2X/DAY
     Dates: start: 20121008
  33. DIFLUCAN [Concomitant]
     Active Substance: FLUCONAZOLE
     Dosage: 100 MG, 1X/DAY
  34. LORAZEPAM. [Concomitant]
     Active Substance: LORAZEPAM
     Indication: PROPHYLAXIS
     Dosage: 0.5 MG, UNK
     Dates: start: 20130925
  35. LIBRAX [Concomitant]
     Active Substance: CHLORDIAZEPOXIDE HYDROCHLORIDE\CLIDINIUM BROMIDE
     Dosage: UNK, 1X/DAY
     Dates: start: 20080123
  36. TESSALON [Concomitant]
     Active Substance: BENZONATATE
     Indication: COUGH
  37. ORUDIS [Concomitant]
     Active Substance: KETOPROFEN
     Dosage: 75 MG, 2X/DAY (PRN) AS NEEDED
     Dates: start: 20080104
  38. LAMICTAL [Concomitant]
     Active Substance: LAMOTRIGINE
     Dosage: 25 MG, DAILY
     Dates: start: 20080229
  39. FLEXERIL [Concomitant]
     Active Substance: CYCLOBENZAPRINE HYDROCHLORIDE
     Dosage: 10 MG, 3X/DAY
     Dates: start: 20120412
  40. CELEBREX [Suspect]
     Active Substance: CELECOXIB
     Indication: PAIN
     Dosage: 200 MG, 2X/DAY
     Dates: start: 20120412
  41. LITHIUM [Concomitant]
     Active Substance: LITHIUM CARBONATE
     Dosage: 300 MG, 1X/DAY
  42. ABILIFY [Concomitant]
     Active Substance: ARIPIPRAZOLE
     Dosage: 10 MG, 1X/DAY
  43. AUGMENTIN [Concomitant]
     Active Substance: AMOXICILLIN\CLAVULANATE POTASSIUM
     Dosage: 875 MG, 2X/DAY
  44. PRILOSEC [Concomitant]
     Active Substance: OMEPRAZOLE MAGNESIUM
     Dosage: 20 MG, 1X/DAY
     Dates: start: 20080229
  45. AMERGE [Concomitant]
     Active Substance: NARATRIPTAN HYDROCHLORIDE
     Dosage: 2.5 MG, UNK
     Dates: start: 20080123
  46. CLINDAMYCIN [Concomitant]
     Active Substance: CLINDAMYCIN\CLINDAMYCIN PHOSPHATE
     Dosage: 150 MG, 2X/DAY
     Dates: start: 20120412
  47. LIDOCAINE. [Concomitant]
     Active Substance: LIDOCAINE
     Dosage: UNK, 1X/DAY
  48. METRONIDAZOLE. [Concomitant]
     Active Substance: METRONIDAZOLE
     Dosage: 500 MG, 2X/DAY X 7 THEN 3 X WEEKLY
     Dates: start: 20120123
  49. TEGRETOL XR [Concomitant]
     Active Substance: CARBAMAZEPINE
     Dosage: 200 MG 3X/DAY
     Dates: start: 20090110
  50. ACIDOPHILUS [Concomitant]
     Active Substance: LACTOBACILLUS ACIDOPHILUS
     Dosage: 100 MG, 3X/DAY
  51. CLEOCIN [Concomitant]
     Active Substance: CLINDAMYCIN PHOSPHATE
     Dosage: 2% 5 GM PV (QHS)
     Dates: start: 20090713
  52. CELEBREX [Suspect]
     Active Substance: CELECOXIB
     Dosage: 200 MG, DAILY
     Dates: start: 20120703
  53. PROBIOTICS [Concomitant]
     Active Substance: PROBIOTICS NOS
     Dosage: 1 DF, 2X/DAY
  54. METRONIDAZOLE. [Concomitant]
     Active Substance: METRONIDAZOLE
     Dosage: 500 MG, 3 X WEEKLY
  55. XANAX XR [Concomitant]
     Active Substance: ALPRAZOLAM
     Dosage: 1 MG, 2X/DAY
     Dates: start: 20071219
  56. ABILIFY [Concomitant]
     Active Substance: ARIPIPRAZOLE
     Dosage: 5 MG, 1X/DAY
  57. CLEOCIN [Concomitant]
     Active Substance: CLINDAMYCIN PHOSPHATE
     Dosage: 2% 5 GM PV (QHS)
     Dates: start: 20090729
  58. LAMICTAL [Concomitant]
     Active Substance: LAMOTRIGINE
     Dosage: 25 MG, 1X/DAY
  59. CYMBALTA [Concomitant]
     Active Substance: DULOXETINE HYDROCHLORIDE
     Dosage: 30 MG, 1X/DAY
     Dates: start: 20071219
  60. TRAMADOL [Concomitant]
     Active Substance: TRAMADOL
     Dosage: 50 MG, 4X/DAY
     Dates: start: 20090415
  61. ROBITUSSIN AC [Concomitant]
     Dosage: 10 MG (5 ML Q6H)
     Dates: start: 20090307

REACTIONS (27)
  - Gait disturbance [Unknown]
  - Muscle spasms [Unknown]
  - Myalgia [Unknown]
  - Type V hyperlipidaemia [Unknown]
  - Pain [Unknown]
  - Vitamin D deficiency [Unknown]
  - Weight increased [Unknown]
  - Intervertebral disc disorder [Unknown]
  - Visual impairment [Unknown]
  - Mixed incontinence [Unknown]
  - Myositis [Unknown]
  - Conjunctivitis [Unknown]
  - Drug intolerance [Unknown]
  - Activities of daily living impaired [Unknown]
  - Pain in extremity [Unknown]
  - Ligament sprain [Recovering/Resolving]
  - Back pain [Unknown]
  - Musculoskeletal stiffness [Unknown]
  - Spinal pain [Unknown]
  - Headache [Unknown]
  - Road traffic accident [Recovering/Resolving]
  - Neck pain [Unknown]
  - Muscle strain [Unknown]
  - Fatigue [Unknown]
  - Peripheral swelling [Recovered/Resolved]
  - Acute sinusitis [Unknown]
  - Asthenia [Unknown]

NARRATIVE: CASE EVENT DATE: 20130130
